FAERS Safety Report 23684392 (Version 2)
Quarter: 2024Q2

REPORT INFORMATION
  Report Type: Report from Study
  Country: US (occurrence: US)
  Receive Date: 20240328
  Receipt Date: 20240429
  Transmission Date: 20240716
  Serious: Yes (Death, Other)
  Sender: FDA-Public Use
  Company Number: US-BAYER-2023A182804

PATIENT
  Age: 48 Year
  Sex: Female
  Weight: 55.329 kg

DRUGS (19)
  1. ADEMPAS [Suspect]
     Active Substance: RIOCIGUAT
     Indication: Pulmonary arterial hypertension
     Dosage: UNK
     Dates: start: 20230724
  2. ADEMPAS [Suspect]
     Active Substance: RIOCIGUAT
     Indication: Pulmonary arterial hypertension
     Dosage: 2.5 MG, TID
     Route: 048
  3. ADEMPAS [Suspect]
     Active Substance: RIOCIGUAT
     Indication: Pulmonary arterial hypertension
     Dosage: UNK
     Dates: start: 20240301
  4. LEVOTHYROXINE SODIUM [Concomitant]
     Active Substance: LEVOTHYROXINE SODIUM
  5. XANAX [Concomitant]
     Active Substance: ALPRAZOLAM
  6. FUROSEMIDE [Concomitant]
     Active Substance: FUROSEMIDE
  7. KETAMINE HYDROCHLORIDE [Concomitant]
     Active Substance: KETAMINE HYDROCHLORIDE
  8. ALBUTEROL SULFATE [Concomitant]
     Active Substance: ALBUTEROL SULFATE
  9. FLONASE ALLERGY RELIEF [Concomitant]
     Active Substance: FLUTICASONE PROPIONATE
  10. CLONIDINE [Concomitant]
     Active Substance: CLONIDINE
  11. KETOPROFEN [Concomitant]
     Active Substance: KETOPROFEN
  12. ORENITRAM [Concomitant]
     Active Substance: TREPROSTINIL
  13. LIDOCAINE HYDROCHLORIDE [Concomitant]
     Active Substance: LIDOCAINE HYDROCHLORIDE
  14. POTASSIUM [Concomitant]
     Active Substance: POTASSIUM
  15. AMITRIPTYLINE [Concomitant]
     Active Substance: AMITRIPTYLINE
  16. GABAPENTIN [Concomitant]
     Active Substance: GABAPENTIN
  17. POLOXAMER [Concomitant]
     Active Substance: POLOXAMER
  18. AMBRISENTAN [Concomitant]
     Active Substance: AMBRISENTAN
  19. SYMBICORT [Concomitant]
     Active Substance: BUDESONIDE\FORMOTEROL FUMARATE DIHYDRATE

REACTIONS (8)
  - Pulmonary haemorrhage [Fatal]
  - Shock [None]
  - Oxygen saturation decreased [None]
  - Fatigue [None]
  - Illness [None]
  - Cardiac disorder [None]
  - Dyspnoea [None]
  - Vomiting [None]
